FAERS Safety Report 15624408 (Version 1)
Quarter: 2018Q4

REPORT INFORMATION
  Report Type: Spontaneous
  Country: US (occurrence: US)
  Receive Date: 20181116
  Receipt Date: 20181116
  Transmission Date: 20190205
  Serious: No
  Sender: FDA-Public Use
  Company Number: US-TEVA-2018-US-972672

PATIENT
  Sex: Female
  Weight: 47 kg

DRUGS (4)
  1. VITAMIN D3 [Concomitant]
     Active Substance: CHOLECALCIFEROL
     Route: 065
  2. CALTRATE [Concomitant]
     Active Substance: CALCIUM CARBONATE
     Route: 065
  3. ALENDTAB-A [Suspect]
     Active Substance: ALENDRONIC ACID
     Dosage: DOSE STRENGTH 70 UNKNOWN
  4. FISH OIL [Concomitant]
     Active Substance: FISH OIL
     Route: 065

REACTIONS (3)
  - Malaise [Unknown]
  - Muscle spasms [Unknown]
  - Myalgia [Unknown]
